FAERS Safety Report 15791332 (Version 1)
Quarter: 2019Q1

REPORT INFORMATION
  Report Type: Spontaneous
  Country: US (occurrence: US)
  Receive Date: 20190104
  Receipt Date: 20190104
  Transmission Date: 20190417
  Serious: No
  Sender: FDA-Public Use
  Company Number: US-KVK-TECH, INC-2060888

PATIENT
  Age: 53 Year
  Sex: Male

DRUGS (1)
  1. OXYCODONE HYDROCHLORIDE. [Suspect]
     Active Substance: OXYCODONE HYDROCHLORIDE
     Indication: PAIN
     Route: 065

REACTIONS (5)
  - Feeling abnormal [Unknown]
  - Nausea [Unknown]
  - Drug ineffective [Unknown]
  - Malaise [Unknown]
  - Prostatic specific antigen increased [Unknown]
